FAERS Safety Report 7827509-2 (Version None)
Quarter: 2011Q4

REPORT INFORMATION
  Report Type: 
  Country: None (occurrence: None)
  Receive Date: 20111020
  Receipt Date: 20111011
  Transmission Date: 20120403
  Serious: Yes (Hospitalization)
  Sender: FDA-Public Use
  Company Number: PHFR2011GB04480

PATIENT
  Sex: Female

DRUGS (10)
  1. CLOZARIL [Suspect]
     Route: 065
     Dates: start: 20010701
  2. SENNA [Concomitant]
     Dosage: UNK
     Route: 065
  3. CLOZARIL [Suspect]
     Dosage: UNK
     Route: 065
  4. AMISULPRIDE [Suspect]
     Dosage: UNK
     Route: 065
  5. BISACODYL [Concomitant]
     Dosage: UNK
     Route: 065
  6. ACE INHIBITORS [Concomitant]
     Dosage: UNK
     Route: 065
  7. LISINOPRIL [Concomitant]
     Dosage: UNK
     Route: 065
  8. CLOZARIL [Suspect]
     Indication: SCHIZOPHRENIA
     Route: 065
     Dates: start: 19980918
  9. LEVOTHYROXINE SODIUM [Concomitant]
     Dosage: UNK
     Route: 065
  10. ATORVASTATIN [Concomitant]
     Dosage: UNK
     Route: 065

REACTIONS (4)
  - RENAL FAILURE ACUTE [None]
  - CELLULITIS [None]
  - INFECTION [None]
  - VOMITING [None]
